FAERS Safety Report 9335249 (Version 2)
Quarter: 2013Q2

REPORT INFORMATION
  Report Type: Spontaneous
  Country: US (occurrence: US)
  Receive Date: 20130606
  Receipt Date: 20130625
  Transmission Date: 20140414
  Serious: No
  Sender: FDA-Public Use
  Company Number: US-PFIZER INC-2013167652

PATIENT
  Sex: Female

DRUGS (7)
  1. SKELAXIN [Suspect]
     Dosage: UNK
  2. METFORMIN HCL [Suspect]
     Dosage: UNK
  3. BACTRIM [Suspect]
     Dosage: UNK
  4. AMITRIPTYLINE [Suspect]
     Dosage: UNK
  5. ERYTHROMYCIN [Suspect]
     Dosage: UNK
  6. CIPRO [Suspect]
     Dosage: UNK
  7. MESTINON [Suspect]
     Dosage: UNK

REACTIONS (1)
  - Drug hypersensitivity [Unknown]
